FAERS Safety Report 7273933-9 (Version None)
Quarter: 2011Q1

REPORT INFORMATION
  Report Type: 
  Country: None (occurrence: None)
  Receive Date: 20110203
  Receipt Date: 20110125
  Transmission Date: 20110831
  Serious: Yes (Death, Life-Threatening, Hospitalization)
  Sender: FDA-Public Use
  Company Number: FR-PFIZER INC-2010008983

PATIENT
  Age: 44 Year
  Sex: Male

DRUGS (6)
  1. GEMTUZUMAB OZOGAMICIN [Suspect]
     Indication: ACUTE MYELOID LEUKAEMIA
     Dosage: 12 MG DAILY
     Route: 042
     Dates: start: 20081128, end: 20081128
  2. CYTARABINE [Suspect]
     Indication: ACUTE MYELOID LEUKAEMIA
     Dosage: 1G DAILY ON DAYS 1,2,3 AND 2G BID ON DAYS 8,9,10(INDUCTION)
     Route: 042
     Dates: start: 20080104
  3. CYTARABINE [Suspect]
     Dosage: 2 G, 2X/DAY
     Route: 042
     Dates: start: 20081128, end: 20081202
  4. ZAVEDOS [Suspect]
     Indication: ACUTE MYELOID LEUKAEMIA
     Dosage: 24 MG DAILY
     Route: 042
     Dates: start: 20081128, end: 20081130
  5. RASBURICASE [Suspect]
     Indication: ACUTE MYELOID LEUKAEMIA
     Dosage: 17.4 MG, TOTAL DAILY
     Dates: start: 20081128, end: 20081129
  6. CYTARABINE [Suspect]
     Dosage: 6 G DAILY FROM DAY 1 TO 5 (CONSOLIDATION)
     Route: 042

REACTIONS (6)
  - PANCYTOPENIA [None]
  - VENOOCCLUSIVE LIVER DISEASE [None]
  - PLEURAL EFFUSION [None]
  - ASCITES [None]
  - STREPTOCOCCAL SEPSIS [None]
  - SHOCK HAEMORRHAGIC [None]
